FAERS Safety Report 5710195-5 (Version None)
Quarter: 2008Q2

REPORT INFORMATION
  Report Type: 
  Country: None (occurrence: None)
  Receive Date: 20080418
  Receipt Date: 20080407
  Transmission Date: 20081010
  Serious: Yes (Other)
  Sender: FDA-Public Use
  Company Number: US-PFIZER INC-2008012418

PATIENT
  Sex: Female

DRUGS (1)
  1. CHANTIX [Suspect]
     Indication: SMOKING CESSATION THERAPY

REACTIONS (6)
  - CHILLS [None]
  - HALLUCINATION, AUDITORY [None]
  - PAIN [None]
  - PNEUMONIA [None]
  - PRODUCTIVE COUGH [None]
  - SOMNOLENCE [None]
